FAERS Safety Report 25335823 (Version 1)
Quarter: 2025Q2

REPORT INFORMATION
  Report Type: Spontaneous
  Country: GR (occurrence: GR)
  Receive Date: 20250520
  Receipt Date: 20250520
  Transmission Date: 20250716
  Serious: Yes (Other)
  Sender: MYLAN
  Company Number: GR-PFIZER INC-PV202500052273

PATIENT
  Age: 37 Year
  Sex: Female

DRUGS (2)
  1. METHOTREXATE [Suspect]
     Active Substance: METHOTREXATE
     Indication: Peripheral spondyloarthritis
     Dosage: 15 MILLIGRAM, QW (15 MG, WEEKLY)
  2. ADALIMUMAB [Suspect]
     Active Substance: ADALIMUMAB
     Indication: Peripheral spondyloarthritis
     Dosage: 40 MILLIGRAM, Q2W (40 MG / 14 DAYS)

REACTIONS (4)
  - Coeliac disease [Unknown]
  - Iron deficiency anaemia [Unknown]
  - Weight decreased [Unknown]
  - Off label use [Unknown]
